FAERS Safety Report 7464083-7 (Version None)
Quarter: 2011Q2

REPORT INFORMATION
  Report Type: 
  Country: None (occurrence: None)
  Receive Date: 20110506
  Receipt Date: 20110506
  Transmission Date: 20111010
  Serious: Yes (Death)
  Sender: FDA-Public Use
  Company Number: GB-ABBOTT-11P-167-0723841-00

PATIENT
  Sex: Female
  Weight: 52 kg

DRUGS (2)
  1. HUMIRA [Suspect]
     Indication: RHEUMATOID ARTHRITIS
     Route: 058
     Dates: start: 20041115, end: 20050215
  2. METHOTREXATE [Concomitant]
     Indication: PRODUCT USED FOR UNKNOWN INDICATION
     Dosage: ONGOING AT THE TIME OF EVENT
     Dates: start: 20090415

REACTIONS (1)
  - METASTATIC NEOPLASM [None]
